FAERS Safety Report 24028695 (Version 1)
Quarter: 2024Q2

REPORT INFORMATION
  Report Type: Spontaneous
  Country: ES (occurrence: ES)
  Receive Date: 20240628
  Receipt Date: 20240628
  Transmission Date: 20240716
  Serious: Yes (Hospitalization)
  Sender: FDA-Public Use
  Company Number: ES-002147023-NVSC2024ES126164

PATIENT
  Age: 22 Year
  Sex: Female

DRUGS (3)
  1. MYCOPHENOLIC ACID [Suspect]
     Active Substance: MYCOPHENOLIC ACID
     Indication: Systemic lupus erythematosus
     Dosage: 720 MILLIGRAM
     Route: 065
  2. CALCIUM [Suspect]
     Active Substance: CALCIUM
     Indication: Systemic lupus erythematosus
     Dosage: UNK
     Route: 065
  3. PREDNISONE [Suspect]
     Active Substance: PREDNISONE
     Indication: Systemic lupus erythematosus
     Dosage: 20 MILLIGRAM, ONCE A DAY  (HIGH-DOSE WITH TAPERING)
     Route: 065

REACTIONS (4)
  - Malaise [Unknown]
  - Pyrexia [Unknown]
  - Tonsillitis [Unknown]
  - Product use in unapproved indication [Unknown]
